FAERS Safety Report 4587408-9 (Version None)
Quarter: 2005Q1

REPORT INFORMATION
  Report Type: 
  Country: None (occurrence: None)
  Receive Date: 20050218
  Receipt Date: 20050209
  Transmission Date: 20050727
  Serious: Yes (Life-Threatening, Other)
  Sender: FDA-Public Use
  Company Number: US-JNJFOC-20050103114

PATIENT
  Sex: Male
  Weight: 68.04 kg

DRUGS (8)
  1. REMICADE [Suspect]
     Route: 042
  2. REMICADE [Suspect]
     Route: 042
  3. REMICADE [Suspect]
     Route: 042
  4. REMICADE [Suspect]
     Route: 042
  5. REMICADE [Suspect]
     Route: 042
  6. REMICADE [Suspect]
     Indication: CROHN'S DISEASE
     Route: 042
  7. PENTASA [Concomitant]
     Indication: CROHN'S DISEASE
  8. 6MP [Concomitant]
     Indication: CROHN'S DISEASE

REACTIONS (2)
  - METASTASES TO LIVER [None]
  - SMALL INTESTINE CARCINOMA [None]
